FAERS Safety Report 5918657-2 (Version None)
Quarter: 2008Q4

REPORT INFORMATION
  Report Type: 
  Country: None (occurrence: None)
  Receive Date: 20081015
  Receipt Date: 20080422
  Transmission Date: 20090506
  Serious: No
  Sender: FDA-Public Use
  Company Number: US-ASTRAZENECA-2008UW08257

PATIENT
  Age: 76 Year
  Sex: Female
  Weight: 51.3 kg

DRUGS (6)
  1. SYMBICORT [Suspect]
     Indication: CHRONIC OBSTRUCTIVE PULMONARY DISEASE
     Route: 055
     Dates: start: 20080201
  2. PREMARIN [Concomitant]
  3. PROCARDIA [Concomitant]
  4. ZESTRIL [Concomitant]
  5. PROAIR HFA [Concomitant]
  6. SPIRIVA [Concomitant]

REACTIONS (2)
  - FLUID RETENTION [None]
  - WEIGHT INCREASED [None]
